FAERS Safety Report 8551641-1 (Version None)
Quarter: 2012Q3

REPORT INFORMATION
  Report Type: 
  Country: None (occurrence: None)
  Receive Date: 20120730
  Receipt Date: 20120724
  Transmission Date: 20120928
  Serious: Yes (Other)
  Sender: FDA-Public Use
  Company Number: CN-BAYER-2012-075777

PATIENT

DRUGS (2)
  1. AVELOX [Suspect]
     Dosage: UNK
     Route: 064
  2. AVELOX [Suspect]
     Dosage: UNK
     Route: 064

REACTIONS (1)
  - FOETAL DISORDER [None]
